FAERS Safety Report 19141163 (Version 1)
Quarter: 2021Q2

REPORT INFORMATION
  Report Type: Report from Study
  Country: US (occurrence: US)
  Receive Date: 20210415
  Receipt Date: 20210415
  Transmission Date: 20210717
  Serious: Yes (Other)
  Sender: FDA-Public Use
  Company Number: US-SHIRE-US202033309

PATIENT
  Sex: Female

DRUGS (1)
  1. HUMAN IMMUNOGLOBULIN; HYALURONIDASE [Suspect]
     Active Substance: HUMAN IMMUNOGLOBULIN G\HYALURONIDASE RECOMBINANT HUMAN
     Indication: IMMUNODEFICIENCY COMMON VARIABLE
     Dosage: UNK
     Route: 065

REACTIONS (6)
  - Gastrointestinal infection [Unknown]
  - Fatigue [Not Recovered/Not Resolved]
  - Bladder disorder [Unknown]
  - Illness [Not Recovered/Not Resolved]
  - Localised infection [Unknown]
  - Pneumothorax [Not Recovered/Not Resolved]
